FAERS Safety Report 23945821 (Version 1)
Quarter: 2024Q2

REPORT INFORMATION
  Report Type: Spontaneous
  Country: TW (occurrence: TW)
  Receive Date: 20240606
  Receipt Date: 20240606
  Transmission Date: 20240716
  Serious: Yes (Other)
  Sender: FDA-Public Use
  Company Number: TW-PFIZER INC-PV202400072902

PATIENT
  Sex: Female

DRUGS (1)
  1. LORLATINIB [Suspect]
     Active Substance: LORLATINIB
     Dosage: UNK

REACTIONS (3)
  - Renal failure [Unknown]
  - Cardiac failure [Unknown]
  - Metabolic acidosis [Unknown]
